FAERS Safety Report 19257871 (Version 1)
Quarter: 2021Q2

REPORT INFORMATION
  Report Type: Spontaneous
  Country: IT (occurrence: IT)
  Receive Date: 20210514
  Receipt Date: 20210514
  Transmission Date: 20210717
  Serious: Yes (Other)
  Sender: FDA-Public Use
  Company Number: IT-SA-2021SA159525

PATIENT
  Age: 16 Year
  Sex: Male

DRUGS (1)
  1. DUPILUMAB [Suspect]
     Active Substance: DUPILUMAB
     Indication: DERMATITIS ATOPIC

REACTIONS (4)
  - Hyperaemia [Unknown]
  - Corneal dystrophy [Unknown]
  - Keratitis [Unknown]
  - Conjunctival hyperaemia [Unknown]
